FAERS Safety Report 6924832-0 (Version None)
Quarter: 2010Q3

REPORT INFORMATION
  Report Type: 
  Country: None (occurrence: None)
  Receive Date: 20100816
  Receipt Date: 20100812
  Transmission Date: 20110219
  Serious: Yes (Death, Life-Threatening, Hospitalization)
  Sender: FDA-Public Use
  Company Number: TR-ELI_LILLY_AND_COMPANY-TR201004000010

PATIENT
  Sex: Male
  Weight: 82 kg

DRUGS (19)
  1. PEMETREXED [Suspect]
     Indication: NON-SMALL CELL LUNG CANCER
     Dosage: 500 MG/M2, DAY 1 EVERY 21 DAYS
     Route: 042
     Dates: start: 20100329
  2. CISPLATIN [Suspect]
     Indication: NON-SMALL CELL LUNG CANCER
     Dosage: 75 MG/M2, DAY 1 EVERY 21 DAYS
     Route: 042
     Dates: start: 20100329
  3. FOLIC ACID [Concomitant]
     Indication: PROPHYLAXIS
     Dates: start: 20100324
  4. VITAMIN B-12 [Concomitant]
     Indication: PROPHYLAXIS
     Dates: start: 20100324, end: 20100324
  5. DEXAMETHASONE [Concomitant]
     Indication: PROPHYLAXIS
     Dates: start: 20100328, end: 20100330
  6. GLIMEPIRIDE [Concomitant]
     Indication: DIABETES MELLITUS
     Dates: start: 20030101, end: 20100325
  7. METFORMIN HCL [Concomitant]
     Indication: DIABETES MELLITUS
     Dates: start: 20030101, end: 20100325
  8. METFORMIN HCL [Concomitant]
     Dates: start: 20100329, end: 20100402
  9. IRBESARTAN [Concomitant]
     Indication: HYPERTENSION
     Dates: start: 20070101
  10. METOPROLOL /00376902/ [Concomitant]
     Indication: HYPERTENSION
     Dates: start: 20070101
  11. LEVOTHYROXINE SODIUM [Concomitant]
     Indication: THYROIDECTOMY
     Dosage: UNK, UNK
     Dates: start: 20070101
  12. INSULIN ZINC SUSPENSION (CRYSTALLINE) [Concomitant]
     Indication: DIABETES MELLITUS
     Dates: start: 20100325
  13. NPH INSULIN [Concomitant]
     Indication: DIABETES MELLITUS
     Dates: start: 20100325
  14. ZOPICLONE [Concomitant]
     Indication: PROPHYLAXIS
     Dosage: UNK, UNKNOWN
     Route: 065
     Dates: start: 20100329, end: 20100402
  15. ALPRAZOLAM [Concomitant]
     Indication: PROPHYLAXIS
     Dosage: UNK, UNKNOWN
     Route: 065
     Dates: start: 20100329, end: 20100402
  16. AMOXICILLIN [Concomitant]
     Indication: PROPHYLAXIS
     Dosage: UNK, UNKNOWN
     Route: 065
     Dates: start: 20100329, end: 20100402
  17. CLAVULANATE POTASSIUM [Concomitant]
     Indication: PROPHYLAXIS
     Dosage: UNK, UNKNOWN
     Route: 065
     Dates: start: 20100329, end: 20100402
  18. IOHEXOL [Concomitant]
     Indication: COMPUTERISED TOMOGRAM ABDOMEN
     Dosage: UNK, UNKNOWN
     Route: 065
     Dates: start: 20100330, end: 20100330
  19. LANZOPRAL [Concomitant]
     Indication: PROPHYLAXIS
     Dosage: UNK, UNKNOWN
     Route: 065
     Dates: start: 20100329, end: 20100402

REACTIONS (2)
  - CARDIO-RESPIRATORY ARREST [None]
  - PULMONARY EMBOLISM [None]
